FAERS Safety Report 10196111 (Version 1)
Quarter: 2014Q2

REPORT INFORMATION
  Report Type: Spontaneous
  Country: US (occurrence: US)
  Receive Date: 20140527
  Receipt Date: 20140527
  Transmission Date: 20141212
  Serious: No
  Sender: FDA-Public Use
  Company Number: US-JNJFOC-20140508849

PATIENT
  Sex: Male
  Weight: 120.2 kg

DRUGS (4)
  1. DURAGESIC [Suspect]
     Indication: PAIN
     Route: 062
     Dates: start: 201312, end: 201402
  2. DURAGESIC [Suspect]
     Indication: PAIN
     Route: 062
     Dates: start: 201402, end: 201404
  3. DURAGESIC [Suspect]
     Indication: PAIN
     Route: 062
     Dates: start: 201404
  4. DURAGESIC [Suspect]
     Indication: PAIN
     Route: 062
     Dates: start: 201311, end: 201312

REACTIONS (4)
  - Drug ineffective [Not Recovered/Not Resolved]
  - Product adhesion issue [Unknown]
  - Wrong technique in drug usage process [Not Recovered/Not Resolved]
  - Product quality issue [Unknown]
